FAERS Safety Report 5305182-5 (Version None)
Quarter: 2007Q2

REPORT INFORMATION
  Report Type: 
  Country: None (occurrence: None)
  Receive Date: 20070416
  Receipt Date: 20070409
  Transmission Date: 20071010
  Serious: Yes (Other)
  Sender: FDA-Public Use
  Company Number: 2007SP001332

PATIENT
  Age: 57 Year
  Sex: Male

DRUGS (16)
  1. NOXAFIL [Suspect]
     Indication: SINUSITIS FUNGAL
     Dosage: 400 MG;BID;PO
     Route: 048
     Dates: start: 20070104
  2. SIMVASTATIN [Suspect]
     Indication: SINUSITIS FUNGAL
     Dosage: 10 MG; QD
  3. AMBISOME (CON.) [Concomitant]
  4. DILAUDID (CON.) [Concomitant]
  5. BACTRIM (CON.) [Concomitant]
  6. SODIUM BICARBONATE (CON.) [Concomitant]
  7. LASIX (CON.) [Concomitant]
  8. CLONIDINE (CON.) [Concomitant]
  9. MYFORTIC (CON.) [Concomitant]
  10. NEXIUM (CON.) [Concomitant]
  11. KEPPRA (CON.) [Concomitant]
  12. CARDIZEM (CON.) [Concomitant]
  13. PROGRAF (CON.) [Concomitant]
  14. LOPRESSOR (CON.) [Concomitant]
  15. FOLIC ACID (CON.) [Concomitant]
  16. COUMADIN (CON.) [Concomitant]

REACTIONS (5)
  - DRUG INTERACTION [None]
  - HYPOKALAEMIA [None]
  - HYPOMAGNESAEMIA [None]
  - RENAL FAILURE ACUTE [None]
  - RHABDOMYOLYSIS [None]
